FAERS Safety Report 12828712 (Version 1)
Quarter: 2016Q4

REPORT INFORMATION
  Report Type: Spontaneous
  Country: US (occurrence: US)
  Receive Date: 20161007
  Receipt Date: 20161007
  Transmission Date: 20170207
  Serious: No
  Sender: FDA-Public Use
  Company Number: US-SA-2015SA176658

PATIENT
  Age: 66 Year
  Sex: Female
  Weight: 61.2 kg

DRUGS (10)
  1. AMPYRA [Suspect]
     Active Substance: DALFAMPRIDINE
     Indication: GAIT DISTURBANCE
     Route: 048
     Dates: start: 2015, end: 201510
  2. PAROXETINE. [Concomitant]
     Active Substance: PAROXETINE
     Dates: start: 1990
  3. MYRBETRIQ [Concomitant]
     Active Substance: MIRABEGRON
     Dates: start: 2015
  4. AUBAGIO [Suspect]
     Active Substance: TERIFLUNOMIDE
     Indication: MULTIPLE SCLEROSIS
     Route: 048
     Dates: start: 20151007, end: 20151012
  5. CLONAZEPAM. [Concomitant]
     Active Substance: CLONAZEPAM
     Dates: start: 1990
  6. D-MANNOSE [Concomitant]
  7. TIZANIDINE. [Suspect]
     Active Substance: TIZANIDINE
     Route: 065
     Dates: start: 2015
  8. AMPYRA [Suspect]
     Active Substance: DALFAMPRIDINE
     Indication: GAIT DISTURBANCE
     Route: 048
     Dates: start: 2014
  9. COPAXONE [Concomitant]
     Active Substance: GLATIRAMER ACETATE
     Dosage: STARTED 16 YEARS AGO
  10. PRAVASTATIN. [Concomitant]
     Active Substance: PRAVASTATIN
     Dates: start: 2005

REACTIONS (1)
  - Dizziness [Recovering/Resolving]

NARRATIVE: CASE EVENT DATE: 20151014
